FAERS Safety Report 21704356 (Version 1)
Quarter: 2022Q4

REPORT INFORMATION
  Report Type: Spontaneous
  Country: CA (occurrence: CA)
  Receive Date: 20221209
  Receipt Date: 20221209
  Transmission Date: 20230113
  Serious: Yes (Death, Other)
  Sender: FDA-Public Use
  Company Number: CA-TEVA-2022-CA-2832779

PATIENT

DRUGS (2)
  1. PROPOFOL [Suspect]
     Active Substance: PROPOFOL
     Indication: Product used for unknown indication
     Route: 042
  2. NOREPINEPHRINE BITARTRATE [Suspect]
     Active Substance: NOREPINEPHRINE BITARTRATE
     Indication: Product used for unknown indication
     Route: 042

REACTIONS (6)
  - Adverse reaction [Fatal]
  - Death [Fatal]
  - Device alarm issue [Fatal]
  - Drug delivery system issue [Fatal]
  - Drug ineffective [Fatal]
  - Wrong technique in product usage process [Fatal]
